FAERS Safety Report 9700402 (Version 2)
Quarter: 2013Q4

REPORT INFORMATION
  Report Type: Spontaneous
  Country: US (occurrence: US)
  Receive Date: 20131121
  Receipt Date: 20131227
  Transmission Date: 20140711
  Serious: Yes (Hospitalization, Disabling, Other)
  Sender: FDA-Public Use
  Company Number: US-ASTRAZENECA-2013SE84145

PATIENT
  Age: 78 Year
  Sex: Male
  Weight: 82.6 kg

DRUGS (5)
  1. SYMBICORT [Suspect]
     Indication: ASTHMA
     Dosage: 160/45, TWO PUFFS, TWO TIMES A DAY
     Route: 055
  2. SYMBICORT [Suspect]
     Indication: CHRONIC OBSTRUCTIVE PULMONARY DISEASE
     Dosage: 160/45, TWO PUFFS, TWO TIMES A DAY
     Route: 055
  3. SYMBICORT [Suspect]
     Indication: ASTHMA
     Dosage: 160/45, ONE PUFFS, TWO TIMES A DAY
     Route: 055
  4. SYMBICORT [Suspect]
     Indication: CHRONIC OBSTRUCTIVE PULMONARY DISEASE
     Dosage: 160/45, ONE PUFFS, TWO TIMES A DAY
     Route: 055
  5. UNSPECIFIED ANTIBIOTICS [Suspect]
     Route: 065

REACTIONS (9)
  - Asbestosis [Unknown]
  - Diverticulitis [Unknown]
  - Hypoacusis [Unknown]
  - Aphagia [Unknown]
  - Weight decreased [Unknown]
  - Weight increased [Unknown]
  - Vomiting [Unknown]
  - Intentional drug misuse [Unknown]
  - Drug ineffective [Unknown]
